FAERS Safety Report 6290158-4 (Version None)
Quarter: 2009Q3

REPORT INFORMATION
  Report Type: 
  Country: None (occurrence: None)
  Receive Date: 20090730
  Receipt Date: 20081217
  Transmission Date: 20100115
  Serious: No
  Sender: FDA-Public Use
  Company Number: US-BRISTOL-MYERS SQUIBB COMPANY-14446603

PATIENT
  Sex: Female

DRUGS (1)
  1. COUMADIN [Suspect]

REACTIONS (7)
  - CHROMATURIA [None]
  - CONTUSION [None]
  - HAEMARTHROSIS [None]
  - HAEMORRHAGE SUBCUTANEOUS [None]
  - JOINT EFFUSION [None]
  - JOINT SWELLING [None]
  - OEDEMA PERIPHERAL [None]
